FAERS Safety Report 5974852-8 (Version None)
Quarter: 2008Q4

REPORT INFORMATION
  Report Type: 
  Country: None (occurrence: None)
  Receive Date: 20081202
  Receipt Date: 20081128
  Transmission Date: 20090506
  Serious: Yes (Hospitalization, Other)
  Sender: FDA-Public Use
  Company Number: US-PFIZER INC-2008101058

PATIENT
  Sex: Female
  Weight: 99.8 kg

DRUGS (7)
  1. GEODON [Suspect]
     Indication: DEPRESSION
     Dates: start: 20081001, end: 20080101
  2. GEODON [Suspect]
     Indication: ANXIETY
  3. VALSARTAN [Concomitant]
  4. DEXAMETHASONE [Concomitant]
  5. FLUOXETINE [Concomitant]
  6. TRAZODONE HCL [Concomitant]
  7. NITROGLYCERIN [Concomitant]

REACTIONS (4)
  - ANXIETY [None]
  - CARDIAC STRESS TEST [None]
  - CARDIAC STRESS TEST ABNORMAL [None]
  - DYSPNOEA [None]
